FAERS Safety Report 4379952-4 (Version None)
Quarter: 2004Q2

REPORT INFORMATION
  Report Type: 
  Country: None (occurrence: None)
  Receive Date: 20040614
  Receipt Date: 20040601
  Transmission Date: 20050107
  Serious: Yes (Hospitalization)
  Sender: FDA-Public Use
  Company Number: 04P-056-0262678-00

PATIENT
  Age: 51 Year
  Sex: Female

DRUGS (3)
  1. ISOPTIN [Suspect]
     Indication: HYPERTENSION
     Dosage: 240 MG, 1 IN 1 D, ORAL
     Route: 048
     Dates: start: 20040401
  2. BROMAZEPAM [Concomitant]
  3. TRIMETAZIDINE [Concomitant]

REACTIONS (2)
  - DEAFNESS UNILATERAL [None]
  - VERTIGO [None]
